FAERS Safety Report 10950855 (Version 1)
Quarter: 2015Q1

REPORT INFORMATION
  Report Type: Spontaneous
  Country: US (occurrence: None)
  Receive Date: 20150226
  Receipt Date: 20150226
  Transmission Date: 20150721
  Serious: Yes (Hospitalization)
  Sender: FDA-Public Use
  Company Number: TPA2010A05821

PATIENT
  Age: 53 Year
  Sex: Female

DRUGS (4)
  1. FISH OIL (FISH OIL) [Concomitant]
     Active Substance: FISH OIL
  2. PREVACID [Suspect]
     Active Substance: LANSOPRAZOLE
     Indication: GASTROOESOPHAGEAL REFLUX DISEASE
     Dates: start: 20101110, end: 20101110
  3. VASERETIC (HYDROCHLOROTHIAZIDE, ENALAPRIL MALEATE) [Concomitant]
  4. SIMVASTATIN (SIMVASTATIN) [Concomitant]
     Active Substance: SIMVASTATIN

REACTIONS (6)
  - Hypotension [None]
  - Erythema [None]
  - Anaphylactic reaction [None]
  - Asthenia [None]
  - Loss of consciousness [None]
  - Dyspnoea [None]

NARRATIVE: CASE EVENT DATE: 20101111
